FAERS Safety Report 8907711 (Version 1)
Quarter: 2012Q4

REPORT INFORMATION
  Report Type: 
  Country: FR (occurrence: FR)
  Receive Date: 20121114
  Receipt Date: 20121114
  Transmission Date: 20130627
  Serious: Yes (Hospitalization, Other)
  Sender: FDA-Public Use
  Company Number: FR-PFIZER INC-2012282842

PATIENT
  Age: 81 Year
  Sex: Female

DRUGS (17)
  1. EUPANTOL [Suspect]
     Dosage: 40 mg daily
     Route: 065
     Dates: start: 20110808, end: 20110811
  2. LOVENOX [Suspect]
     Dosage: 4000 IU, unk
     Route: 058
     Dates: start: 20110811, end: 20120812
  3. SERESTA [Suspect]
     Dosage: UNK
     Dates: start: 20110808
  4. BISOPROLOL [Suspect]
     Dosage: UNK
     Dates: start: 20110808
  5. DOLIPRANE [Concomitant]
     Dosage: UNK
  6. ACTISKENAN [Concomitant]
     Dosage: 10 Milligram
  7. DUROGESIC [Concomitant]
     Dosage: 50 Milligram
  8. SPRYCEL [Concomitant]
     Indication: CHRONIC MYELOCYTIC LEUKEMIA
     Dosage: 50 Milligram
  9. IMOVANE [Concomitant]
     Dosage: 7.5 Milligram
  10. XYZAL [Concomitant]
  11. HEMIGOXINE NATIVELLE [Concomitant]
  12. PARIET [Concomitant]
     Dosage: 10 Milligram
  13. FORLAX [Concomitant]
  14. LASILIX [Concomitant]
     Dosage: 40 Milligram
  15. SEROPLEX [Concomitant]
     Dosage: 10 Milligram
  16. KARDEGIC [Concomitant]
     Dosage: 75 Milligram
  17. LEXOMIL [Concomitant]

REACTIONS (2)
  - Thrombocytopenia [Recovered/Resolved]
  - Renal failure acute [Recovered/Resolved]
